FAERS Safety Report 15289007 (Version 1)
Quarter: 2018Q3

REPORT INFORMATION
  Report Type: Spontaneous
  Country: US (occurrence: US)
  Receive Date: 20180803
  Receipt Date: 20180803
  Transmission Date: 20181010
  Serious: No
  Sender: FDA-Public Use
  Company Number: None

PATIENT
  Age: 69 Year
  Sex: Female
  Weight: 74.25 kg

DRUGS (4)
  1. RENVELA [Concomitant]
     Active Substance: SEVELAMER CARBONATE
  2. EVISTA [Concomitant]
     Active Substance: RALOXIFENE HYDROCHLORIDE
  3. AURYXIA [Suspect]
     Active Substance: TETRAFERRIC TRICITRATE DECAHYDRATE
     Indication: BLOOD PHOSPHORUS ABNORMAL
     Dosage: ?          QUANTITY:2 DF DOSAGE FORM;?
     Route: 048
     Dates: start: 20180730, end: 20180730
  4. SLCITRIOL [Concomitant]

REACTIONS (6)
  - Feeding disorder [None]
  - Hyperhidrosis [None]
  - Dizziness [None]
  - Vomiting [None]
  - Dysgeusia [None]
  - Hypotension [None]

NARRATIVE: CASE EVENT DATE: 20180730
